FAERS Safety Report 10409758 (Version 1)
Quarter: 2014Q3

REPORT INFORMATION
  Report Type: Spontaneous
  Country: US (occurrence: None)
  Receive Date: 20140825
  Receipt Date: 20140825
  Transmission Date: 20150326
  Serious: Yes (Other)
  Sender: FDA-Public Use
  Company Number: None

PATIENT
  Age: 62 Year
  Sex: Female
  Weight: 54.43 kg

DRUGS (1)
  1. OFLOXACIN OTIC [Suspect]
     Active Substance: OFLOXACIN
     Indication: CATARACT OPERATION
     Dosage: 4 X^S  FOUR TIMES DAILY  INTO THE EYE
     Dates: start: 20140731, end: 20140814

REACTIONS (4)
  - Eye irritation [None]
  - Vision blurred [None]
  - Drug dispensing error [None]
  - Incorrect route of drug administration [None]

NARRATIVE: CASE EVENT DATE: 20140731
